FAERS Safety Report 8817721 (Version 1)
Quarter: 2012Q4

REPORT INFORMATION
  Report Type: 
  Country: FR (occurrence: FR)
  Receive Date: 20121001
  Receipt Date: 20121001
  Transmission Date: 20130627
  Serious: Yes (Hospitalization, Other)
  Sender: FDA-Public Use
  Company Number: FR-PFIZER INC-2012237033

PATIENT
  Age: 48 Year
  Sex: Female

DRUGS (4)
  1. EFFEXOR LP [Suspect]
     Dosage: 75 mg, 1x/day
     Route: 048
     Dates: start: 201203, end: 20120824
  2. NEURONTIN [Concomitant]
     Dosage: 400 mg, 3x/day
     Route: 048
  3. LAROXYL [Concomitant]
     Dosage: UNK
     Route: 048
     Dates: start: 201207
  4. TOPALGIC [Concomitant]
     Dosage: 150 mg, 2x/day
     Route: 048

REACTIONS (11)
  - Loss of consciousness [Recovered/Resolved with Sequelae]
  - Hypogammaglobulinaemia [Unknown]
  - Tachycardia [Recovered/Resolved with Sequelae]
  - Hyperhidrosis [Recovered/Resolved with Sequelae]
  - Weight increased [Unknown]
  - Presyncope [Unknown]
  - Malaise [Unknown]
  - Feeling hot [Unknown]
  - Alopecia [Unknown]
  - Cortisol free urine decreased [Unknown]
  - Oedema [Unknown]
